FAERS Safety Report 5209047-9 (Version None)
Quarter: 2006Q4

REPORT INFORMATION
  Report Type: 
  Country: None (occurrence: None)
  Receive Date: 20061101
  Receipt Date: 20060724
  Transmission Date: 20070319
  Serious: No
  Sender: FDA-Public Use
  Company Number: 2006PV018107

PATIENT
  Age: 52 Year
  Sex: Female

DRUGS (4)
  1. SYMLIN [Suspect]
     Indication: DIABETES MELLITUS NON-INSULIN-DEPENDENT
     Dosage: 120 MCG;BID;SC
     Route: 058
     Dates: start: 20060501
  2. BYETTA [Concomitant]
  3. HUMULIN 70/30 [Concomitant]
  4. GLYSET [Concomitant]

REACTIONS (1)
  - BLOOD GLUCOSE INCREASED [None]
